APPROVED DRUG PRODUCT: VALMID
Active Ingredient: ETHINAMATE
Strength: 500MG
Dosage Form/Route: CAPSULE;ORAL
Application: N009750 | Product #001
Applicant: DISTA PRODUCTS CO DIV ELI LILLY AND CO
Approved: Approved Prior to Jan 1, 1982 | RLD: No | RS: No | Type: DISCN